FAERS Safety Report 12955332 (Version 1)
Quarter: 2016Q4

REPORT INFORMATION
  Report Type: Spontaneous
  Country: US (occurrence: US)
  Receive Date: 20161118
  Receipt Date: 20161118
  Transmission Date: 20170207
  Serious: No
  Sender: FDA-Public Use
  Company Number: US-PERRIGO-16US016242

PATIENT
  Age: 78 Year
  Sex: Male
  Weight: 77.98 kg

DRUGS (26)
  1. POLYETHYLENE GLYCOL 3350. [Suspect]
     Active Substance: POLYETHYLENE GLYCOL 3350
     Dosage: 17 G, BID
     Route: 048
     Dates: start: 20160511, end: 20160516
  2. LOSARTAN. [Concomitant]
     Active Substance: LOSARTAN
     Indication: BLOOD CHOLESTEROL INCREASED
  3. FUROSEMIDE. [Concomitant]
     Active Substance: FUROSEMIDE
     Indication: CARDIAC DISORDER
     Dosage: UNK
     Route: 048
  4. OMEGA 3                            /01334101/ [Concomitant]
     Active Substance: OMEGA-3 FATTY ACIDS
     Indication: BLOOD CHOLESTEROL INCREASED
     Dosage: UNK
     Route: 048
  5. IBUPROFEN. [Concomitant]
     Active Substance: IBUPROFEN
     Indication: PAIN
     Dosage: UNK
     Route: 048
     Dates: end: 20160502
  6. DIGOXIN. [Concomitant]
     Active Substance: DIGOXIN
     Indication: ROUTINE HEALTH MAINTENANCE
     Dosage: UNK
     Route: 048
  7. POLYETHYLENE GLYCOL 3350. [Suspect]
     Active Substance: POLYETHYLENE GLYCOL 3350
     Indication: CONSTIPATION
     Dosage: 17 G, SINGLE
     Route: 048
     Dates: start: 20160502, end: 20160502
  8. POLYETHYLENE GLYCOL 3350. [Suspect]
     Active Substance: POLYETHYLENE GLYCOL 3350
     Dosage: 17 G, QD
     Route: 048
     Dates: start: 20160517
  9. ISOSORBIDE. [Concomitant]
     Active Substance: ISOSORBIDE
     Indication: ROUTINE HEALTH MAINTENANCE
     Dosage: UNK
     Route: 048
  10. POLYETHYLENE GLYCOL 3350. [Suspect]
     Active Substance: POLYETHYLENE GLYCOL 3350
     Dosage: 17 G, QD
     Route: 048
     Dates: start: 20160505, end: 20160510
  11. METAMUCIL [Suspect]
     Active Substance: PLANTAGO SEED
     Indication: CONSTIPATION
     Dosage: 1 TBSP, ONE TO TWO TIMES QD
     Route: 048
     Dates: start: 2001, end: 20160515
  12. CLOPIDOGREL [Concomitant]
     Active Substance: CLOPIDOGREL BISULFATE
     Indication: ROUTINE HEALTH MAINTENANCE
     Dosage: UNK
     Route: 048
  13. OCUVITE [Concomitant]
     Active Substance: VITAMINS
     Indication: ROUTINE HEALTH MAINTENANCE
     Dosage: UNK
     Route: 048
  14. AMITRIPTYLINE [Concomitant]
     Active Substance: AMITRIPTYLINE
     Indication: SLEEP DISORDER
     Dosage: UNK
     Route: 048
     Dates: end: 20160502
  15. HYDROCODONE [Concomitant]
     Active Substance: HYDROCODONE
     Indication: PAIN
     Dosage: UNK
     Route: 048
     Dates: end: 20160502
  16. ASPIRIN                            /00002701/ [Concomitant]
     Active Substance: ASPIRIN
     Indication: ANTICOAGULANT THERAPY
     Dosage: UNK
     Route: 048
  17. ATORVASTATIN [Concomitant]
     Active Substance: ATORVASTATIN
     Indication: BLOOD CHOLESTEROL INCREASED
  18. LOSARTAN. [Concomitant]
     Active Substance: LOSARTAN
     Indication: ROUTINE HEALTH MAINTENANCE
     Dosage: UNK
     Route: 048
  19. METOPROLOL. [Concomitant]
     Active Substance: METOPROLOL
     Indication: BLOOD CHOLESTEROL INCREASED
  20. MONASCUS PURPUREUS [Concomitant]
     Active Substance: RED YEAST
     Indication: ROUTINE HEALTH MAINTENANCE
     Dosage: UNK
     Route: 048
  21. GLUCOSAMINE [Concomitant]
     Active Substance: GLUCOSAMINE
     Indication: ROUTINE HEALTH MAINTENANCE
     Dosage: UNK
     Route: 048
  22. ATORVASTATIN [Concomitant]
     Active Substance: ATORVASTATIN
     Indication: ROUTINE HEALTH MAINTENANCE
     Dosage: UNK
     Route: 048
  23. METOPROLOL. [Concomitant]
     Active Substance: METOPROLOL
     Indication: ROUTINE HEALTH MAINTENANCE
     Dosage: UNK
     Route: 048
  24. FLAXSEED [Concomitant]
     Active Substance: FLAX SEED
     Indication: ROUTINE HEALTH MAINTENANCE
     Dosage: UNK
     Route: 048
  25. TIMOLOL                            /00371202/ [Concomitant]
     Indication: GLAUCOMA
     Dosage: UNK
     Route: 047
  26. NITROSTAT [Concomitant]
     Active Substance: NITROGLYCERIN
     Indication: MYOCARDIAL INFARCTION
     Dosage: UNK, PRN
     Route: 048

REACTIONS (8)
  - Wrong technique in product usage process [Recovered/Resolved]
  - Abdominal pain [Not Recovered/Not Resolved]
  - Dyspnoea [Unknown]
  - Gastrointestinal motility disorder [Not Recovered/Not Resolved]
  - Frequent bowel movements [Not Recovered/Not Resolved]
  - Inappropriate schedule of drug administration [Recovered/Resolved]
  - Abdominal distension [Not Recovered/Not Resolved]
  - Incorrect drug administration duration [Unknown]

NARRATIVE: CASE EVENT DATE: 20160502
